FAERS Safety Report 20970851 (Version 2)
Quarter: 2022Q2

REPORT INFORMATION
  Report Type: Spontaneous
  Country: US (occurrence: US)
  Receive Date: 20220616
  Receipt Date: 20220616
  Transmission Date: 20220720
  Serious: No
  Sender: FDA-Public Use
  Company Number: US-SA-SAC20220608000318

PATIENT
  Age: 58 Year
  Sex: Female

DRUGS (30)
  1. KEVZARA [Suspect]
     Active Substance: SARILUMAB
     Indication: Rheumatoid arthritis
     Dosage: 200 MG, QOW
     Route: 058
     Dates: start: 20220408
  2. DIETARY SUPPLEMENT\HERBALS\MINERALS\VITAMINS [Suspect]
     Active Substance: DIETARY SUPPLEMENT\HERBALS\MINERALS\VITAMINS
     Dosage: 25MG
  3. CELEBREX [Suspect]
     Active Substance: CELECOXIB
  4. DIMETHICONE [Suspect]
     Active Substance: DIMETHICONE
     Dosage: 25MG
  5. LYRICA [Suspect]
     Active Substance: PREGABALIN
     Dosage: 15MG
  6. MOBIC [Suspect]
     Active Substance: MELOXICAM
     Dosage: 25MG
  7. AMLODIPINE [Concomitant]
     Active Substance: AMLODIPINE BESYLATE
  8. ATORVASTATIN [Concomitant]
     Active Substance: ATORVASTATIN
  9. BACLOFEN [Concomitant]
     Active Substance: BACLOFEN
  10. BELBUCA [Concomitant]
     Active Substance: BUPRENORPHINE HYDROCHLORIDE
  11. DICLOFENAC [Concomitant]
     Active Substance: DICLOFENAC
  12. DULOXETINE [Concomitant]
     Active Substance: DULOXETINE
  13. EZETIMIBE [Concomitant]
     Active Substance: EZETIMIBE
  14. FLUCONAZOLE [Concomitant]
     Active Substance: FLUCONAZOLE
  15. LANSOPRAZOLE [Concomitant]
     Active Substance: LANSOPRAZOLE
  16. LEFLUNOMIDE [Concomitant]
     Active Substance: LEFLUNOMIDE
  17. METOPROLOL [Concomitant]
     Active Substance: METOPROLOL
  18. ONDANSETRON [Concomitant]
     Active Substance: ONDANSETRON
  19. OSPHENA [Concomitant]
     Active Substance: OSPEMIFENE
  20. OXYCODONE [Concomitant]
     Active Substance: OXYCODONE
  21. ROSUVASTATIN [Concomitant]
     Active Substance: ROSUVASTATIN
  22. TYMLOS [Concomitant]
     Active Substance: ABALOPARATIDE
  23. VITAMIN D NOS [Concomitant]
     Active Substance: VITAMIN D NOS
  24. ZETA [FUSIDIC ACID] [Concomitant]
  25. LEVOTHYROXINE [Concomitant]
     Active Substance: LEVOTHYROXINE
  26. FERROUS SULFATE [Concomitant]
     Active Substance: FERROUS SULFATE
  27. DICLOFENAC [Concomitant]
     Active Substance: DICLOFENAC
  28. TAR [Concomitant]
     Active Substance: TAR
     Dosage: 8MG
  29. VITAMIN C [Concomitant]
     Active Substance: ASCORBIC ACID
     Dosage: 45MG
  30. NOPIOID LMC [Concomitant]

REACTIONS (5)
  - Diarrhoea [Not Recovered/Not Resolved]
  - Fatigue [Not Recovered/Not Resolved]
  - Nausea [Not Recovered/Not Resolved]
  - Vomiting [Not Recovered/Not Resolved]
  - Product dose omission issue [Unknown]

NARRATIVE: CASE EVENT DATE: 20220101
